FAERS Safety Report 4349089-9 (Version None)
Quarter: 2004Q2

REPORT INFORMATION
  Report Type: 
  Country: None (occurrence: None)
  Receive Date: 20040423
  Receipt Date: 20040407
  Transmission Date: 20050107
  Serious: Yes (Hospitalization, Other)
  Sender: FDA-Public Use
  Company Number: 230030K04AUS

PATIENT
  Age: 48 Year
  Sex: Female
  Weight: 68 kg

DRUGS (2)
  1. REBIF [Suspect]
     Indication: MULTIPLE SCLEROSIS
     Dosage: 44 MCG, 3 IN 1 WEEKS, SUBCUTANEOUS
     Route: 058
     Dates: start: 20030401
  2. ASPIRIN [Concomitant]

REACTIONS (1)
  - HEPATIC NEOPLASM MALIGNANT [None]
